FAERS Safety Report 13313222 (Version 1)
Quarter: 2017Q1

REPORT INFORMATION
  Report Type: Report from Study
  Country: None (occurrence: IT)
  Receive Date: 20170309
  Receipt Date: 20170309
  Transmission Date: 20170428
  Serious: Yes (Hospitalization, Other)
  Sender: FDA-Public Use
  Company Number: IT-ABBVIE-17P-083-1896664-00

PATIENT
  Age: 73 Year
  Sex: Male
  Weight: 50 kg

DRUGS (1)
  1. DUODOPA [Suspect]
     Active Substance: CARBIDOPA\LEVODOPA
     Indication: PARKINSON^S DISEASE
     Dosage: MD 4 +3 ??CR 1.5 ??ED 1
     Route: 050
     Dates: start: 20170227, end: 20170228

REACTIONS (5)
  - Medical device site injury [Unknown]
  - Haemorrhage [Unknown]
  - Hypotension [Unknown]
  - Melaena [Unknown]
  - Device dislocation [Unknown]

NARRATIVE: CASE EVENT DATE: 20170228
